FAERS Safety Report 4267150-4 (Version None)
Quarter: 2004Q1

REPORT INFORMATION
  Report Type: 
  Country: None (occurrence: None)
  Receive Date: 20040107
  Receipt Date: 20031218
  Transmission Date: 20041129
  Serious: Yes (Death)
  Sender: FDA-Public Use
  Company Number: JP_031202405

PATIENT
  Age: 53 Year
  Sex: Male
  Weight: 59 kg

DRUGS (7)
  1. ZYPREXA [Suspect]
     Indication: SCHIZOPHRENIA
     Dosage: 15 MG/DAY
     Route: 048
     Dates: start: 20030421
  2. HIRNAMIN (LEVOMEPROMAZINE) [Concomitant]
  3. IMPROMEN (BROMPERIDOL) [Concomitant]
  4. MYCOSOLVAN (AMBROXOL HYDROCHLORIDE) [Concomitant]
  5. THEO-DUR [Concomitant]
  6. PAKISONAL (TRIHEXYPHENIDYL HYDROCHLORIDE) [Concomitant]
  7. TASMOLIN (BIPERIDEN) [Concomitant]

REACTIONS (4)
  - ABNORMAL BEHAVIOUR [None]
  - CHRONIC HEPATITIS [None]
  - COMPLETED SUICIDE [None]
  - INJURY ASPHYXIATION [None]
